FAERS Safety Report 7818280-9 (Version None)
Quarter: 2011Q4

REPORT INFORMATION
  Report Type: 
  Country: None (occurrence: None)
  Receive Date: 20111017
  Receipt Date: 20111007
  Transmission Date: 20120403
  Serious: Yes (Other)
  Sender: FDA-Public Use
  Company Number: JP-ABBOTT-11P-087-0857924-00

PATIENT
  Sex: Male

DRUGS (6)
  1. VALPROATE SODIUM [Suspect]
     Indication: DEPRESSION
  2. AKINETON [Suspect]
     Indication: AKATHISIA
     Route: 030
  3. LITHIUM CARBONATE [Suspect]
     Indication: DEPRESSION
     Route: 048
  4. ARIPIPRAZOLE [Suspect]
     Indication: AKATHISIA
  5. ETIZOLAM [Suspect]
     Indication: DEPRESSION
  6. ALPRAZOLAM [Suspect]
     Indication: DEPRESSION
     Route: 048

REACTIONS (2)
  - DELIRIUM [None]
  - AKATHISIA [None]
